FAERS Safety Report 18104792 (Version 6)
Quarter: 2020Q4

REPORT INFORMATION
  Report Type: Report from Study
  Country: AU (occurrence: AU)
  Receive Date: 20200804
  Receipt Date: 20201006
  Transmission Date: 20210113
  Serious: Yes (Other)
  Sender: FDA-Public Use
  Company Number: AU-BEH-2020120254

PATIENT
  Age: 77 Year
  Sex: Male

DRUGS (6)
  1. BERINERT [Suspect]
     Active Substance: HUMAN C1-ESTERASE INHIBITOR
     Indication: HEREDITARY ANGIOEDEMA
     Dosage: 4000 INTERNATIONAL UNIT, BIW WEDNESDAY 9PM AND SUNDAY 9AM
     Route: 058
  2. BERINERT [Suspect]
     Active Substance: HUMAN C1-ESTERASE INHIBITOR
     Indication: PROPHYLAXIS
  3. BERINERT [Suspect]
     Active Substance: HUMAN C1-ESTERASE INHIBITOR
     Indication: HEREDITARY ANGIOEDEMA WITH C1 ESTERASE INHIBITOR DEFICIENCY
     Dosage: 3000 INTERNATIONAL UNIT, BIW
     Route: 058
     Dates: start: 20200604
  4. BERINERT [Suspect]
     Active Substance: HUMAN C1-ESTERASE INHIBITOR
     Indication: PROPHYLAXIS
     Dosage: 4000 INTERNATIONAL UNIT, TOT
     Route: 058
     Dates: start: 202007
  5. DANAZOL. [Concomitant]
     Active Substance: DANAZOL
     Dosage: 100 MILLIGRAM, BID
     Route: 065
  6. BERINERT [Suspect]
     Active Substance: HUMAN C1-ESTERASE INHIBITOR
     Dosage: 3000 INTERNATIONAL UNIT
     Route: 058

REACTIONS (24)
  - Faeces soft [Recovered/Resolved]
  - Hereditary angioedema [Recovered/Resolved]
  - Gastrointestinal motility disorder [Recovered/Resolved]
  - Rash pruritic [Recovering/Resolving]
  - Hereditary angioedema [Unknown]
  - Abdominal pain upper [Recovered/Resolved]
  - Hereditary angioedema [Unknown]
  - Fungal skin infection [Not Recovered/Not Resolved]
  - Diarrhoea [Recovered/Resolved]
  - Stress [Unknown]
  - Liver disorder [Not Recovered/Not Resolved]
  - Rash pruritic [Not Recovered/Not Resolved]
  - Hereditary angioedema [Recovered/Resolved]
  - Hereditary angioedema [Recovered/Resolved]
  - Hereditary angioedema [Not Recovered/Not Resolved]
  - Feeling abnormal [Unknown]
  - Gastrointestinal motility disorder [Unknown]
  - Constipation [Recovered/Resolved]
  - Blister [Recovering/Resolving]
  - Rash erythematous [Recovering/Resolving]
  - Abdominal distension [Recovered/Resolved]
  - Gastrointestinal disorder [Recovered/Resolved]
  - Gastrointestinal motility disorder [Not Recovered/Not Resolved]
  - Hereditary angioedema [Recovered/Resolved]

NARRATIVE: CASE EVENT DATE: 20200710
